FAERS Safety Report 8242734-7 (Version None)
Quarter: 2012Q1

REPORT INFORMATION
  Report Type: 
  Country: None (occurrence: None)
  Receive Date: 20120329
  Receipt Date: 20120322
  Transmission Date: 20120608
  Serious: Yes (Hospitalization)
  Sender: FDA-Public Use
  Company Number: DE-UCBSA-053922

PATIENT
  Sex: Female

DRUGS (2)
  1. KEPPRA [Suspect]
     Dosage: 1-0-1
     Dates: start: 20110101
  2. NO CONCOMITANT MEDICATION [Concomitant]

REACTIONS (1)
  - MYOSITIS [None]
